FAERS Safety Report 8078228-1 (Version None)
Quarter: 2012Q1

REPORT INFORMATION
  Report Type: 
  Country: None (occurrence: None)
  Receive Date: 20120123
  Receipt Date: 20120107
  Transmission Date: 20120608
  Serious: Yes (Hospitalization)
  Sender: FDA-Public Use
  Company Number: 12-ADE-SU-0004-ACT

PATIENT
  Age: 7 Month
  Sex: Male
  Weight: 9.5255 kg

DRUGS (2)
  1. VIGABATRIN [Concomitant]
  2. H.P. ACTHAR GEL [Suspect]
     Indication: INFANTILE SPASMS
     Dosage: 60-70 IU IM QD - TAPER
     Dates: start: 20111129, end: 20120104

REACTIONS (4)
  - GASTROOESOPHAGEAL REFLUX DISEASE [None]
  - VOMITING [None]
  - DRUG INEFFECTIVE [None]
  - DEHYDRATION [None]
